FAERS Safety Report 8993469 (Version 3)
Quarter: 2013Q1

REPORT INFORMATION
  Report Type: Spontaneous
  Country: US (occurrence: US)
  Receive Date: 20130102
  Receipt Date: 20130116
  Transmission Date: 20140127
  Serious: No
  Sender: FDA-Public Use
  Company Number: US-PFIZER INC-2012330134

PATIENT
  Age: 51 Year
  Sex: Female
  Weight: 61.22 kg

DRUGS (4)
  1. ZITHROMAX [Suspect]
     Indication: NASOPHARYNGITIS
     Dosage: 250 MG, 2 TABLETS FIRST DAY, THEN 1 TABLET DAILY
     Route: 048
     Dates: start: 20121223
  2. ZITHROMAX [Suspect]
     Indication: SINUSITIS
  3. ZITHROMAX [Suspect]
     Indication: PHARYNGITIS
  4. ZITHROMAX [Suspect]
     Indication: LOWER RESPIRATORY TRACT INFECTION

REACTIONS (2)
  - Pruritus [Not Recovered/Not Resolved]
  - Rash [Not Recovered/Not Resolved]
